FAERS Safety Report 8852870 (Version 1)
Quarter: 2012Q4

REPORT INFORMATION
  Report Type: 
  Country: CA (occurrence: CA)
  Receive Date: 20121022
  Receipt Date: 20121022
  Transmission Date: 20130627
  Serious: Yes (Other)
  Sender: FDA-Public Use
  Company Number: PHMT2007CA01243

PATIENT
  Sex: Female

DRUGS (1)
  1. SANDOSTATIN LAR [Suspect]
     Indication: ACROMEGALY
     Dosage: 40 mg, every 4 weeks
     Dates: start: 20060201

REACTIONS (14)
  - Aggression [Unknown]
  - Malaise [Unknown]
  - Hot flush [Unknown]
  - Blood glucose abnormal [Unknown]
  - Asthenia [Unknown]
  - Fatigue [Unknown]
  - Injection site discomfort [Unknown]
  - Injection site haemorrhage [Unknown]
  - Migraine [Unknown]
  - Blood pressure increased [Recovering/Resolving]
  - Depression [Unknown]
  - Heart rate decreased [Unknown]
  - Neck pain [Unknown]
  - Gastrointestinal disorder [Unknown]
